FAERS Safety Report 13243896 (Version 1)
Quarter: 2017Q1

REPORT INFORMATION
  Report Type: Report from Study
  Country: FR (occurrence: FR)
  Receive Date: 20170216
  Receipt Date: 20170216
  Transmission Date: 20170428
  Serious: Yes (Other)
  Sender: FDA-Public Use
  Company Number: FR-SEATTLE GENETICS-2017SGN00292

PATIENT

DRUGS (2)
  1. BRENTUXIMAB VEDOTIN [Suspect]
     Active Substance: BRENTUXIMAB VEDOTIN
     Indication: HODGKIN^S DISEASE
     Dosage: 1.2 MG/KG, UNK
     Route: 042
     Dates: start: 20161122
  2. LEVACT [Suspect]
     Active Substance: BENDAMUSTINE HYDROCHLORIDE
     Indication: HODGKIN^S DISEASE
     Dosage: 90 MG/M2, QD
     Route: 042
     Dates: start: 20161123

REACTIONS (1)
  - Lymphopenia [Recovered/Resolved]

NARRATIVE: CASE EVENT DATE: 20161130
